FAERS Safety Report 15888724 (Version 1)
Quarter: 2019Q1

REPORT INFORMATION
  Report Type: Spontaneous
  Country: US (occurrence: US)
  Receive Date: 20190129
  Receipt Date: 20190129
  Transmission Date: 20190417
  Serious: Yes (Life-Threatening)
  Sender: FDA-Public Use
  Company Number: None

PATIENT
  Age: 63 Year
  Sex: Female
  Weight: 65.25 kg

DRUGS (8)
  1. ATORVASTATIN 20 MG DAILY [Concomitant]
  2. VIIBRYD 10 MG DAILY [Concomitant]
  3. FISH OIL [Concomitant]
     Active Substance: FISH OIL
  4. VITAMIN E [Concomitant]
     Active Substance: .ALPHA.-TOCOPHEROL
  5. PRAMIPEXOLE. .5 MG. GENERIC FOR MIRAPEX .5 MG [Suspect]
     Active Substance: PRAMIPEXOLE DIHYDROCHLORIDE
     Indication: TREMOR
     Dosage: ?          QUANTITY:1 TABLET(S);?
     Route: 048
  6. CALCIUM [Concomitant]
     Active Substance: CALCIUM
  7. MULTIVITAMIN [Concomitant]
     Active Substance: VITAMINS
  8. BABY ASPIRIN 1 EACH DAILY [Concomitant]

REACTIONS (3)
  - Alopecia [None]
  - Obsessive-compulsive disorder [None]
  - Suicidal ideation [None]

NARRATIVE: CASE EVENT DATE: 20180830
